FAERS Safety Report 6042674-8 (Version None)
Quarter: 2009Q1

REPORT INFORMATION
  Report Type: 
  Country: None (occurrence: None)
  Receive Date: 20090119
  Receipt Date: 20090108
  Transmission Date: 20090719
  Serious: Yes (Other)
  Sender: FDA-Public Use
  Company Number: PHHY2008DE14372

PATIENT
  Sex: Male

DRUGS (1)
  1. ACLASTA [Suspect]
     Indication: OSTEITIS DEFORMANS
     Dosage: 5 MG ONCE
     Route: 042
     Dates: start: 20080215, end: 20080215

REACTIONS (2)
  - OSTEONECROSIS [None]
  - TOOTH LOSS [None]
